FAERS Safety Report 7577854-3 (Version None)
Quarter: 2011Q2

REPORT INFORMATION
  Report Type: 
  Country: None (occurrence: None)
  Receive Date: 20110621
  Receipt Date: 20110610
  Transmission Date: 20111010
  Serious: Yes (Hospitalization, Disabling, Other)
  Sender: FDA-Public Use
  Company Number: 2010JP006583

PATIENT
  Age: 60 Year
  Sex: Female
  Weight: 49.3 kg

DRUGS (12)
  1. PROGRAF [Suspect]
     Indication: INTERSTITIAL LUNG DISEASE
     Dosage: 2.5 MG, BID, ORAL
     Route: 048
     Dates: start: 20090901, end: 20101020
  2. PROGRAF [Suspect]
     Indication: DERMATOMYOSITIS
     Dosage: 2.5 MG, BID, ORAL
     Route: 048
     Dates: start: 20090901, end: 20101020
  3. PREDNISOLONE TAB [Suspect]
     Indication: DERMATOMYOSITIS
     Dosage: 5 MG, BID, ORAL
     Route: 048
     Dates: start: 20090101
  4. PREDNISOLONE TAB [Suspect]
     Indication: INTERSTITIAL LUNG DISEASE
     Dosage: 5 MG, BID, ORAL
     Route: 048
     Dates: start: 20090101
  5. OMEPRAZOLE [Concomitant]
  6. NOVOLOG [Concomitant]
  7. MAGMITT (MAGNESIUM OXIDE) [Concomitant]
  8. LUMIGAN [Concomitant]
  9. BACTRIM [Concomitant]
  10. BONALON (SLENDRONATE SODIUM) [Concomitant]
  11. TRUSOPT (DORMOLOZIDE HYDROCHLORIDE) [Concomitant]
  12. MIKELAN (CARTEOLOL HYDROCHLORIDE) [Concomitant]

REACTIONS (10)
  - MONOPLEGIA [None]
  - RASH [None]
  - DERMATOMYOSITIS [None]
  - OFF LABEL USE [None]
  - HEMIANOPIA [None]
  - ABNORMAL SENSATION IN EYE [None]
  - PROGRESSIVE MULTIFOCAL LEUKOENCEPHALOPATHY [None]
  - VISUAL ACUITY REDUCED [None]
  - HYPOAESTHESIA [None]
  - HEAD DISCOMFORT [None]
